FAERS Safety Report 9883643 (Version 1)
Quarter: 2014Q1

REPORT INFORMATION
  Report Type: Report from Study
  Country: US (occurrence: US)
  Receive Date: 20140210
  Receipt Date: 20140210
  Transmission Date: 20141002
  Serious: Yes (Hospitalization, Other)
  Sender: FDA-Public Use
  Company Number: US-ROCHE-1343767

PATIENT
  Sex: Female

DRUGS (2)
  1. ACTIVASE [Suspect]
     Indication: EMBOLISM
     Dosage: 4 VIALS, PIGGYBACK, LAST DOSE GIVEN ON 26/DEC/2013
     Route: 042
     Dates: start: 20131226
  2. ACTIVASE [Suspect]
     Route: 065
     Dates: start: 20131226

REACTIONS (15)
  - Infarction [Unknown]
  - Acute respiratory failure [Unknown]
  - Renal failure acute [Unknown]
  - Pulmonary embolism [Unknown]
  - Embolism venous [Unknown]
  - Thrombosis [Unknown]
  - Pneumonia [Unknown]
  - Systemic lupus erythematosus [Unknown]
  - Hypovolaemia [Unknown]
  - Coagulation test abnormal [Unknown]
  - Hypokalaemia [Unknown]
  - Essential hypertension [Unknown]
  - Iron deficiency anaemia [Unknown]
  - Dyspnoea [Unknown]
  - Pyrexia [Unknown]
